FAERS Safety Report 15499457 (Version 6)
Quarter: 2022Q1

REPORT INFORMATION
  Report Type: Spontaneous
  Country: US (occurrence: US)
  Receive Date: 20181015
  Receipt Date: 20220204
  Transmission Date: 20220423
  Serious: No
  Sender: FDA-Public Use
  Company Number: US-PFIZER INC-2018417361

PATIENT
  Age: 64 Year
  Sex: Female

DRUGS (4)
  1. LYRICA [Suspect]
     Active Substance: PREGABALIN
     Indication: Neuropathy peripheral
     Dosage: 1 DF, DAILY (1 CAPSULE DAILY)
     Route: 048
  2. LYRICA [Suspect]
     Active Substance: PREGABALIN
     Indication: Fibromyalgia
  3. LYRICA [Suspect]
     Active Substance: PREGABALIN
     Indication: Small fibre neuropathy
  4. LYRICA [Suspect]
     Active Substance: PREGABALIN
     Indication: Insomnia

REACTIONS (4)
  - Intentional product misuse [Unknown]
  - Pain [Unknown]
  - Therapeutic response unexpected [Unknown]
  - Feeling abnormal [Unknown]
